FAERS Safety Report 7023126-5 (Version None)
Quarter: 2010Q3

REPORT INFORMATION
  Report Type: 
  Country: None (occurrence: None)
  Receive Date: 20100930
  Receipt Date: 20100924
  Transmission Date: 20110219
  Serious: Yes (Other)
  Sender: FDA-Public Use
  Company Number: PHHY2010CA64039

PATIENT
  Sex: Female

DRUGS (1)
  1. SANDOSTATIN LAR [Suspect]
     Indication: CARCINOID TUMOUR
     Dosage: 60 MG, EVERY 3 WEEKS
     Route: 030
     Dates: start: 20040320

REACTIONS (4)
  - BLOOD PRESSURE SYSTOLIC INCREASED [None]
  - EAR INFECTION [None]
  - INJECTION SITE DISCOMFORT [None]
  - PAIN [None]
